FAERS Safety Report 7574147-5 (Version None)
Quarter: 2011Q2

REPORT INFORMATION
  Report Type: 
  Country: None (occurrence: None)
  Receive Date: 20110627
  Receipt Date: 20110615
  Transmission Date: 20111010
  Serious: Yes (Hospitalization, Other)
  Sender: FDA-Public Use
  Company Number: PHEH2007US15445

PATIENT
  Sex: Female

DRUGS (80)
  1. ANTINEOPLASTIC AGENTS [Concomitant]
  2. ZOLOFT [Concomitant]
     Dosage: 50 MG / TWICE DAILY
  3. HYDROCHLOROTHIAZIDE [Concomitant]
  4. POTASSIUM CHLORIDE [Concomitant]
     Dosage: 10 MG / DAILY
  5. ZETIA [Concomitant]
     Dosage: 10 MG / DAILY
  6. ASPIRIN [Concomitant]
     Dosage: 81 MG / DAILY
  7. LORAZEPAM [Concomitant]
     Dosage: 7 MG / AS NEEDED
  8. VELCADE [Concomitant]
     Dosage: UNK
     Route: 042
  9. RANITIDINE [Concomitant]
     Dosage: 150 MG / DAILY
  10. ZOLEDRONIC ACID [Concomitant]
     Dosage: UNK
  11. ALEVE [Concomitant]
     Dosage: UNK
  12. CIPROFLOXACIN [Concomitant]
  13. PREDNISONE [Concomitant]
  14. REQUIP [Concomitant]
  15. XANAX [Concomitant]
  16. ARANESP [Concomitant]
  17. PRAVASTATIN [Concomitant]
     Dosage: 80 MG / DAILY
  18. CYMBALTA [Concomitant]
     Dosage: 30 MG
  19. DESIPRAMIDE HCL [Concomitant]
     Dosage: 10 MG
  20. LIPITOR [Concomitant]
     Dosage: 40 MG / PM
  21. STEROIDS NOS [Concomitant]
     Dosage: 20 MG
  22. ATENOLOL [Concomitant]
     Dosage: 50 MG / DAILY
  23. ACYCLOVIR [Concomitant]
     Dosage: 800 MG / 5 X DAILY FOR 5 DAYS
     Route: 048
  24. DILAUDID [Concomitant]
     Indication: PAIN
     Dosage: 2 MG / 1 OR 2 TABS EVERY 2 HRS, PRN
  25. PRAVASTATIN SODIUM [Concomitant]
  26. FEXOFENADINE HCL [Concomitant]
  27. IPRATROPIUM BROMIDE [Concomitant]
  28. ZOMETA [Suspect]
  29. POTASSIUM [Concomitant]
  30. ZOLOFT [Concomitant]
     Dosage: 100 MG /  DAILY
  31. DECADRON [Concomitant]
     Dosage: UNK
  32. ZOCOR [Concomitant]
     Dosage: 40 MG / TWICE DAILY
  33. RESTORIL [Concomitant]
     Dosage: 1.5 MG / EVERY NIGHT AT BEDTIME
  34. NITROFURANTOIN [Concomitant]
  35. NOVOLIN 70/30 [Concomitant]
  36. REVLIMID [Concomitant]
     Dosage: UNK
     Dates: end: 20070701
  37. TEMAZEPAM [Concomitant]
  38. VALTREX [Concomitant]
  39. DEXAMETHASONE [Concomitant]
  40. PANTOPRAZOLE [Concomitant]
     Dosage: 40 MG / DAILY
  41. VALIUM [Concomitant]
     Dosage: UNK
  42. ATIVAN [Concomitant]
     Dosage: 1 MG / TWICE DAILY
  43. ROXICET [Concomitant]
     Dosage: UNK
  44. NEURONTIN [Concomitant]
     Dosage: 300 MG /T.I.D.
     Route: 048
  45. PROMETHAZINE [Concomitant]
  46. OXYCODONE HCL AND ACETAMINOPHEN [Concomitant]
  47. MORPHINE SULFATE [Concomitant]
     Dosage: 60 MG / TWICE DAILY
  48. NITROFURAN [Concomitant]
     Dosage: 100 MG / TWICE DAILY
  49. PHENERGAN VC [Concomitant]
     Dosage: UNK
  50. PROCRIT                            /00909301/ [Concomitant]
     Dosage: UNK / EVERY 2 WEEKS
  51. SERTRALINE [Concomitant]
  52. LEVAQUIN [Concomitant]
  53. LORATADINE [Concomitant]
  54. AREDIA [Suspect]
  55. PROTONIX [Concomitant]
  56. K-DUR [Concomitant]
     Dosage: 20 MG/ 3 X DAY FOR 2 DAYS, THEN BID
  57. CYTOXAN [Concomitant]
     Dosage: UNK
  58. PAMIDRONATE DISODIUM [Concomitant]
     Dosage: UNK
  59. QUININE SULFATE [Concomitant]
     Indication: MUSCLE SPASMS
     Dosage: 260 MG/ AS NEEDED
     Route: 048
  60. COMPRO [Concomitant]
  61. CEFUROXIME [Concomitant]
  62. RADIATION THERAPY [Concomitant]
  63. PERCOCET [Concomitant]
  64. TEQUIN [Concomitant]
     Dosage: 400 MG / DAILY
  65. ZANTAC [Concomitant]
     Dosage: UNK
  66. ALENDRONATE SODIUM [Concomitant]
  67. THALIDOMIDE [Concomitant]
     Dosage: UNK
  68. GABAPENTIN [Concomitant]
     Dosage: 100 / T.I.D.
  69. PRAVACHOL [Concomitant]
  70. OXYCONTIN [Concomitant]
  71. OMEPRAZOLE [Concomitant]
  72. LISINOPRIL [Concomitant]
  73. OXYCODONE HCL [Concomitant]
     Dosage: 40 MG / TWICE DAILY
  74. ROXICODONE [Concomitant]
     Dosage: 5 MG / AS NEEDED
  75. ZITHROMAX [Concomitant]
     Dosage: UNK
  76. GLYBURIDE [Concomitant]
     Dosage: 5 MG / DAILY BEFORE NOON
  77. PRINZIDE [Concomitant]
     Dosage: 10/12.5 / DAILY
  78. DEPO-MEDROL [Concomitant]
     Dosage: UNK
  79. ROPINIROLE HYDROCHLORIDE [Concomitant]
  80. FUROSEMIDE [Concomitant]

REACTIONS (46)
  - SPINAL OSTEOARTHRITIS [None]
  - INTERVERTEBRAL DISC DISORDER [None]
  - BONE DISORDER [None]
  - OSTEOMYELITIS [None]
  - DENTAL CARIES [None]
  - NEUROPATHY PERIPHERAL [None]
  - BACK PAIN [None]
  - ARTHRALGIA [None]
  - PNEUMONIA [None]
  - CARDIAC FAILURE CONGESTIVE [None]
  - TENDON DISORDER [None]
  - JOINT EFFUSION [None]
  - NAIL DYSTROPHY [None]
  - MULTIPLE MYELOMA [None]
  - LUMBAR VERTEBRAL FRACTURE [None]
  - THROMBOCYTOPENIA [None]
  - SPINAL COLUMN STENOSIS [None]
  - OSTEONECROSIS OF JAW [None]
  - GROIN PAIN [None]
  - RENAL FAILURE [None]
  - BIOPSY BONE MARROW ABNORMAL [None]
  - PLASMACYTOMA [None]
  - PARAESTHESIA [None]
  - DYSPHONIA [None]
  - LEUKOPENIA [None]
  - TRACHEOBRONCHITIS [None]
  - ANXIETY [None]
  - FACIAL PAIN [None]
  - WEIGHT INCREASED [None]
  - MYALGIA [None]
  - PLASMACYTOSIS [None]
  - SPINAL DISORDER [None]
  - SPLENOMEGALY [None]
  - PAIN IN EXTREMITY [None]
  - INFECTION [None]
  - INFLAMMATION [None]
  - RADICULAR PAIN [None]
  - DIABETES MELLITUS [None]
  - FALL [None]
  - ONYCHOMYCOSIS [None]
  - ANAEMIA [None]
  - BONE MARROW FAILURE [None]
  - NEUROFIBROMA [None]
  - INJURY [None]
  - PAIN [None]
  - ONYCHALGIA [None]
